FAERS Safety Report 8572580-6 (Version None)
Quarter: 2012Q3

REPORT INFORMATION
  Report Type: 
  Country: None (occurrence: None)
  Receive Date: 20120806
  Receipt Date: 20120731
  Transmission Date: 20120928
  Serious: Yes (Other)
  Sender: FDA-Public Use
  Company Number: CO-ROCHE-1095721

PATIENT
  Sex: Female

DRUGS (1)
  1. HERCEPTIN [Suspect]
     Indication: BREAST CANCER
     Dosage: LAST DOSE PRIOR TO ADVERSE EVENT 23 JUL 2012
     Route: 042
     Dates: start: 20111029

REACTIONS (2)
  - MIGRAINE [None]
  - ABDOMINAL PAIN [None]
